FAERS Safety Report 25640260 (Version 1)
Quarter: 2025Q3

REPORT INFORMATION
  Report Type: Spontaneous
  Country: BA (occurrence: BA)
  Receive Date: 20250804
  Receipt Date: 20250804
  Transmission Date: 20251021
  Serious: Yes (Hospitalization)
  Sender: ABBVIE
  Company Number: BA-ABBVIE-6399077

PATIENT
  Age: 49 Year
  Sex: Female

DRUGS (1)
  1. BOTULINUM TOXIN TYPE A [Suspect]
     Active Substance: BOTULINUM TOXIN TYPE A
     Indication: Skin wrinkling
     Route: 065
     Dates: start: 20250131, end: 20250131

REACTIONS (10)
  - Circumoral oedema [Not Recovered/Not Resolved]
  - Nodule [Unknown]
  - Erythema [Unknown]
  - Oral herpes [Unknown]
  - Lymphadenopathy [Unknown]
  - Cheilitis [Unknown]
  - Asthenia [Unknown]
  - Skin mass [Unknown]
  - Face oedema [Unknown]
  - Skin mass [Unknown]

NARRATIVE: CASE EVENT DATE: 20250623
